FAERS Safety Report 20788927 (Version 1)
Quarter: 2022Q2

REPORT INFORMATION
  Report Type: Spontaneous
  Country: IE (occurrence: IE)
  Receive Date: 20220505
  Receipt Date: 20220505
  Transmission Date: 20220721
  Serious: Yes (Other)
  Sender: FDA-Public Use
  Company Number: None

PATIENT
  Age: 69 Year
  Sex: Female

DRUGS (3)
  1. VANCOMYCIN [Suspect]
     Active Substance: VANCOMYCIN
     Indication: Central nervous system infection
     Route: 042
  2. FUROSEMIDE [Concomitant]
     Active Substance: FUROSEMIDE
     Dosage: HIGH DOSE
     Route: 042
  3. DEXKETOPROFEN [Concomitant]
     Active Substance: DEXKETOPROFEN

REACTIONS (2)
  - Acute kidney injury [Unknown]
  - Drug level increased [Unknown]

NARRATIVE: CASE EVENT DATE: 20210815
